FAERS Safety Report 23249302 (Version 1)
Quarter: 2023Q4

REPORT INFORMATION
  Report Type: Spontaneous
  Country: CN (occurrence: CN)
  Receive Date: 20231201
  Receipt Date: 20231201
  Transmission Date: 20240110
  Serious: Yes (Disabling)
  Sender: FDA-Public Use
  Company Number: CN-ORGANON-O2311CHN002836

PATIENT
  Age: 58 Year
  Sex: Male
  Weight: 67 kg

DRUGS (24)
  1. EZETIMIBE [Suspect]
     Active Substance: EZETIMIBE
     Indication: Arteriosclerosis coronary artery
     Dosage: 10MG, QD
     Route: 048
     Dates: start: 20231019, end: 20231023
  2. EZETIMIBE [Suspect]
     Active Substance: EZETIMIBE
     Indication: Lipids abnormal
  3. CEFOPERAZONE SODIUM\SULBACTAM SODIUM [Suspect]
     Active Substance: CEFOPERAZONE SODIUM\SULBACTAM SODIUM
     Indication: Pneumonia
     Dosage: 1.0 GRAM, Q12H
     Dates: start: 20231018, end: 20231022
  4. CEFOPERAZONE SODIUM\SULBACTAM SODIUM [Suspect]
     Active Substance: CEFOPERAZONE SODIUM\SULBACTAM SODIUM
     Indication: Anti-infective therapy
  5. ATORVASTATIN CALCIUM [Suspect]
     Active Substance: ATORVASTATIN CALCIUM
     Indication: Arteriosclerosis coronary artery
     Dosage: 20 MILLIGRAM, QD AFTER DINNER
     Route: 048
     Dates: start: 20231017, end: 20231023
  6. ATORVASTATIN CALCIUM [Suspect]
     Active Substance: ATORVASTATIN CALCIUM
     Indication: Hyperlipidaemia
  7. HEPARIN CALCIUM [Concomitant]
     Active Substance: HEPARIN CALCIUM
     Indication: Arteriosclerosis coronary artery
     Dosage: 4100 INTERNATIONAL UNIT, QD
     Dates: start: 20231017, end: 20231023
  8. HEPARIN CALCIUM [Concomitant]
     Active Substance: HEPARIN CALCIUM
     Indication: Anticoagulant therapy
  9. FUROSEMIDE [Concomitant]
     Active Substance: FUROSEMIDE
     Indication: Left ventricular failure
     Dosage: 10 MILLIGRAM, BID
     Route: 042
     Dates: start: 20231017, end: 20231019
  10. FUROSEMIDE [Concomitant]
     Active Substance: FUROSEMIDE
     Indication: Diuretic therapy
  11. FUROSEMIDE [Concomitant]
     Active Substance: FUROSEMIDE
     Indication: Hypovolaemia
  12. FUROSEMIDE [Concomitant]
     Active Substance: FUROSEMIDE
     Indication: Prophylaxis
  13. FUROSEMIDE [Concomitant]
     Active Substance: FUROSEMIDE
     Indication: Left ventricular failure
     Dosage: 40 MILLIGRAM, QD
     Route: 048
     Dates: start: 20231020, end: 20231023
  14. FUROSEMIDE [Concomitant]
     Active Substance: FUROSEMIDE
     Indication: Diuretic therapy
  15. FUROSEMIDE [Concomitant]
     Active Substance: FUROSEMIDE
     Indication: Dehydration
  16. FUROSEMIDE [Concomitant]
     Active Substance: FUROSEMIDE
     Indication: Hypovolaemia
  17. FUROSEMIDE [Concomitant]
     Active Substance: FUROSEMIDE
     Indication: Prophylaxis
  18. DIGOXIN [Concomitant]
     Active Substance: DIGOXIN
     Indication: Left ventricular failure
     Dosage: 0.125 MILLIGRAM, QD
     Route: 048
     Dates: start: 20231018, end: 20231028
  19. DIGOXIN [Concomitant]
     Active Substance: DIGOXIN
     Indication: Asthma
  20. ASMETON [Concomitant]
     Active Substance: AMINOPHYLLINE\CHLORPHENIRAMINE MALEATE\METHOXYPHENAMINE HYDROCHLORIDE\NOSCAPINE
     Indication: Pneumonia
     Dosage: 2 TABLETS, TID
     Route: 048
     Dates: start: 20231017, end: 20231022
  21. ASMETON [Concomitant]
     Active Substance: AMINOPHYLLINE\CHLORPHENIRAMINE MALEATE\METHOXYPHENAMINE HYDROCHLORIDE\NOSCAPINE
     Indication: Cough
  22. ASMETON [Concomitant]
     Active Substance: AMINOPHYLLINE\CHLORPHENIRAMINE MALEATE\METHOXYPHENAMINE HYDROCHLORIDE\NOSCAPINE
     Indication: Asthma
  23. RECOMBINANT HUMAN BRAIN NATRIURETIC PEPTIDE [Concomitant]
     Indication: Left ventricular failure
     Dosage: 0.5 MILLIGRAM, BID
     Dates: start: 20231022, end: 20231024
  24. CORDARONE [Concomitant]
     Active Substance: AMIODARONE HYDROCHLORIDE
     Indication: Atrial fibrillation
     Dosage: 150 MILLIGRAM, QD
     Dates: start: 20231020, end: 20231021

REACTIONS (2)
  - Hepatic function abnormal [Recovering/Resolving]
  - Coagulopathy [Recovering/Resolving]

NARRATIVE: CASE EVENT DATE: 20231023
